FAERS Safety Report 17934720 (Version 1)
Quarter: 2020Q2

REPORT INFORMATION
  Report Type: Spontaneous
  Country: CA (occurrence: CA)
  Receive Date: 20200624
  Receipt Date: 20200624
  Transmission Date: 20200714
  Serious: Yes (Other)
  Sender: FDA-Public Use
  Company Number: CA-TEVA-2020-CA-1792471

PATIENT
  Age: 22 Year
  Sex: Female
  Weight: 72 kg

DRUGS (18)
  1. ACETAMINOPHEN. [Concomitant]
     Active Substance: ACETAMINOPHEN
  2. LACTULOSE SYRUP [Concomitant]
     Active Substance: LACTULOSE
  3. DULOXETINE. [Concomitant]
     Active Substance: DULOXETINE
  4. FRAGMIN [Concomitant]
     Active Substance: DALTEPARIN SODIUM
     Dosage: SOLUTION INTRAVENOUS
  5. HYDROMORPHONE [Concomitant]
     Active Substance: HYDROMORPHONE
     Route: 065
  6. CYCLOBENZAPRINE. [Concomitant]
     Active Substance: CYCLOBENZAPRINE
  7. DEXAMETHASONE. [Concomitant]
     Active Substance: DEXAMETHASONE
  8. DIMENHYDRINATE. [Concomitant]
     Active Substance: DIMENHYDRINATE
  9. SENNOSIDES. [Concomitant]
     Active Substance: SENNOSIDES
  10. HYDROMORPHONE [Concomitant]
     Active Substance: HYDROMORPHONE
     Route: 065
  11. TEVA-HALOPERIDOL [Suspect]
     Active Substance: HALOPERIDOL
     Indication: NAUSEA
     Dosage: 2 MILLIGRAM DAILY;
     Route: 048
  12. CELECOXIB. [Concomitant]
     Active Substance: CELECOXIB
  13. HYDROMORPHONE [Concomitant]
     Active Substance: HYDROMORPHONE
     Route: 065
  14. ONDANSETRON [Concomitant]
     Active Substance: ONDANSETRON
  15. PANTOPRAZOLE [Concomitant]
     Active Substance: PANTOPRAZOLE
  16. BACLOFEN. [Concomitant]
     Active Substance: BACLOFEN
  17. PREGABALIN. [Concomitant]
     Active Substance: PREGABALIN
  18. NORTRIPTYLINE [Concomitant]
     Active Substance: NORTRIPTYLINE

REACTIONS (2)
  - Anaphylactic reaction [Unknown]
  - Rash pustular [Unknown]
